FAERS Safety Report 17440694 (Version 1)
Quarter: 2020Q1

REPORT INFORMATION
  Report Type: Spontaneous
  Country: US (occurrence: US)
  Receive Date: 20200220
  Receipt Date: 20200220
  Transmission Date: 20200409
  Serious: Yes (Death, Hospitalization)
  Sender: FDA-Public Use
  Company Number: US-MYLANLABS-2020M1018908

PATIENT
  Age: 36 Year
  Sex: Female

DRUGS (11)
  1. NOREPINEPHRINE. [Suspect]
     Active Substance: NOREPINEPHRINE
     Indication: BRAIN INJURY
     Route: 065
  2. NALOXONE [Suspect]
     Active Substance: NALOXONE
     Indication: TOXICITY TO VARIOUS AGENTS
     Route: 065
  3. DOPAMINE [Suspect]
     Active Substance: DOPAMINE HYDROCHLORIDE
     Indication: BRAIN STEM ISCHAEMIA
  4. FAT EMULSION NOS [Suspect]
     Active Substance: EGG PHOSPHOLIPIDS\SAFFLOWER OIL\SOYBEAN OIL
     Indication: BRAIN STEM ISCHAEMIA
  5. EPINEPHRINE. [Suspect]
     Active Substance: EPINEPHRINE
     Indication: BRAIN INJURY
  6. NOREPINEPHRINE. [Suspect]
     Active Substance: NOREPINEPHRINE
     Indication: BRAIN STEM ISCHAEMIA
  7. DOPAMINE [Suspect]
     Active Substance: DOPAMINE HYDROCHLORIDE
     Indication: BRAIN INJURY
     Dosage: UNK
     Route: 065
  8. SODIUM BICARBONATE. [Suspect]
     Active Substance: SODIUM BICARBONATE
     Indication: BRAIN INJURY
     Dosage: DRIPS
     Route: 065
  9. FAT EMULSION NOS [Suspect]
     Active Substance: EGG PHOSPHOLIPIDS\SAFFLOWER OIL\SOYBEAN OIL
     Indication: BRAIN INJURY
     Route: 042
  10. EPINEPHRINE. [Suspect]
     Active Substance: EPINEPHRINE
     Indication: BRAIN STEM ISCHAEMIA
     Route: 065
  11. SODIUM BICARBONATE. [Suspect]
     Active Substance: SODIUM BICARBONATE
     Indication: BRAIN STEM ISCHAEMIA

REACTIONS (1)
  - Drug ineffective [Fatal]
